FAERS Safety Report 9557486 (Version 1)
Quarter: 2013Q3

REPORT INFORMATION
  Report Type: Spontaneous
  Country: US (occurrence: US)
  Receive Date: 20130926
  Receipt Date: 20130926
  Transmission Date: 20140515
  Serious: No
  Sender: FDA-Public Use
  Company Number: US-BAYER-2013-116642

PATIENT
  Age: 70 Year
  Sex: Female
  Weight: 72.56 kg

DRUGS (5)
  1. ALEVE GELCAPS [Suspect]
     Indication: ARTHRITIS
     Dosage: 2 DF, QD
     Route: 048
     Dates: start: 2010
  2. MULTIVITAMIN [Concomitant]
  3. GLUCOSAMIN [Concomitant]
  4. FISH OIL [Concomitant]
  5. VITAMIN D NOS [Concomitant]

REACTIONS (1)
  - Incorrect drug administration duration [None]
